FAERS Safety Report 9604053 (Version 1)
Quarter: 2013Q4

REPORT INFORMATION
  Report Type: Spontaneous
  Country: SE (occurrence: SE)
  Receive Date: 20131008
  Receipt Date: 20131008
  Transmission Date: 20140711
  Serious: Yes (Other)
  Sender: FDA-Public Use
  Company Number: SE-BAXTER-2013BAX038300

PATIENT
  Age: 81 Year
  Sex: Male

DRUGS (2)
  1. EXTRANEAL [Suspect]
     Indication: PERITONEAL DIALYSIS
     Route: 033
     Dates: start: 2012
  2. PHYSIONEAL 40 GLUCOSE 1.36% [Suspect]
     Indication: PERITONEAL DIALYSIS
     Route: 033
     Dates: start: 2012

REACTIONS (1)
  - Cerebrovascular accident [Unknown]
